FAERS Safety Report 7231556-1 (Version None)
Quarter: 2011Q1

REPORT INFORMATION
  Report Type: 
  Country: None (occurrence: None)
  Receive Date: 20110118
  Receipt Date: 20110112
  Transmission Date: 20110831
  Serious: Yes (Hospitalization)
  Sender: FDA-Public Use
  Company Number: CH-CELGENEUS-151-C5013-10111733

PATIENT
  Sex: Male
  Weight: 89 kg

DRUGS (11)
  1. DEXAMETHASONE [Suspect]
     Route: 065
     Dates: start: 20101211
  2. ASA [Concomitant]
     Indication: THROMBOSIS PROPHYLAXIS
     Route: 048
     Dates: start: 20101114
  3. CC-5013 [Suspect]
     Indication: MULTIPLE MYELOMA
     Route: 048
     Dates: start: 20100612
  4. DEXAMETHASONE [Suspect]
     Route: 065
     Dates: start: 20101103, end: 20101117
  5. AREDIA [Concomitant]
     Route: 051
     Dates: start: 20100726
  6. CC-5013 [Suspect]
     Route: 048
     Dates: start: 20101103, end: 20101116
  7. CC-5013 [Suspect]
     Route: 048
     Dates: start: 20101211
  8. DEXAMETHASONE [Suspect]
     Indication: MULTIPLE MYELOMA
     Route: 065
     Dates: start: 20100612
  9. COTRIM [Concomitant]
     Indication: INFECTION PROPHYLAXIS
     Route: 048
     Dates: start: 20100614, end: 20101026
  10. ENOXAPARIN SODIUM [Concomitant]
     Indication: THROMBOSIS PROPHYLAXIS
     Route: 058
     Dates: start: 20100612, end: 20101113
  11. PANTOZOL [Concomitant]
     Route: 048
     Dates: start: 20100611

REACTIONS (1)
  - CUTANEOUS VASCULITIS [None]
